FAERS Safety Report 8817162 (Version 1)
Quarter: 2012Q4

REPORT INFORMATION
  Report Type: Spontaneous
  Country: US (occurrence: None)
  Receive Date: 20121003
  Receipt Date: 20121003
  Transmission Date: 20130627
  Serious: No
  Sender: FDA-Public Use
  Company Number: None

PATIENT
  Age: 25 Year
  Sex: Female
  Weight: 104 kg

DRUGS (4)
  1. CEFAZOLIN [Suspect]
     Indication: PYELONEPHRITIS
     Dosage: 2gm X1 IV
     Route: 042
     Dates: start: 20120906
  2. PRENATAL VITAMINS [Concomitant]
  3. IRON [Concomitant]
  4. HYDROCODONE/APAP [Concomitant]

REACTIONS (1)
  - Urticaria [None]
